FAERS Safety Report 6171063-0 (Version None)
Quarter: 2009Q2

REPORT INFORMATION
  Report Type: 
  Country: None (occurrence: None)
  Receive Date: 20090428
  Receipt Date: 20090428
  Transmission Date: 20091009
  Serious: Yes (Life-Threatening, Hospitalization, Disabling, Other)
  Sender: FDA-Public Use
  Company Number: None

PATIENT
  Age: 30 Year
  Sex: Female
  Weight: 68.0396 kg

DRUGS (1)
  1. MIRENA [Suspect]
     Indication: CONTRACEPTION
     Dosage: VARIES CONTINUOUS INTRA-UTERINE APPROXIMATELY ONE YEAR
     Route: 015
     Dates: start: 20080423, end: 20090408

REACTIONS (7)
  - ARTHRALGIA [None]
  - IUCD COMPLICATION [None]
  - MEDICAL DEVICE PAIN [None]
  - MENORRHAGIA [None]
  - RENAL PAIN [None]
  - UTERINE PAIN [None]
  - UTERINE RUPTURE [None]
